FAERS Safety Report 7775529-9 (Version None)
Quarter: 2011Q3

REPORT INFORMATION
  Report Type: 
  Country: None (occurrence: None)
  Receive Date: 20110923
  Receipt Date: 20110912
  Transmission Date: 20111222
  Serious: Yes (Hospitalization)
  Sender: FDA-Public Use
  Company Number: US-PFIZER INC-2011225948

PATIENT
  Age: 81 Year
  Sex: Male

DRUGS (6)
  1. AMIODARONE HCL [Suspect]
     Dosage: 200 MG, 1X/DAY
     Route: 048
  2. AMIODARONE HCL [Suspect]
     Indication: ATRIAL FIBRILLATION
     Route: 042
  3. DIGOXIN [Suspect]
     Dosage: 0.25 MG, 1X/DAY
     Route: 048
  4. DIGOXIN [Suspect]
     Indication: ATRIAL FIBRILLATION
     Route: 042
  5. FUROSEMIDE [Concomitant]
  6. WARFARIN [Concomitant]

REACTIONS (8)
  - ABNORMAL LOSS OF WEIGHT [None]
  - MALAISE [None]
  - CARDIOACTIVE DRUG LEVEL INCREASED [None]
  - ELECTROCARDIOGRAM ST SEGMENT ABNORMAL [None]
  - ATRIOVENTRICULAR BLOCK SECOND DEGREE [None]
  - DECREASED APPETITE [None]
  - DRUG INTERACTION [None]
  - FATIGUE [None]
